FAERS Safety Report 4824695-3 (Version None)
Quarter: 2005Q4

REPORT INFORMATION
  Report Type: 
  Country: None (occurrence: None)
  Receive Date: 20051108
  Receipt Date: 20051020
  Transmission Date: 20060501
  Serious: Yes (Other)
  Sender: FDA-Public Use
  Company Number: DE_051017262

PATIENT
  Age: 10 Year
  Sex: Male

DRUGS (1)
  1. STRATTERA [Suspect]
     Indication: ATYPICAL ATTENTION DEFICIT SYNDROME
     Dosage: 50 MG
     Dates: start: 20050727, end: 20051010

REACTIONS (4)
  - APATHY [None]
  - DEPRESSED MOOD [None]
  - SCHOOL REFUSAL [None]
  - SUICIDAL IDEATION [None]
